FAERS Safety Report 5248777-X (Version None)
Quarter: 2007Q1

REPORT INFORMATION
  Report Type: 
  Country: None (occurrence: None)
  Receive Date: 20070228
  Receipt Date: 20060120
  Transmission Date: 20070707
  Serious: No
  Sender: FDA-Public Use
  Company Number: US-GLAXOSMITHKLINE-A0590781A

PATIENT
  Age: 58 Year
  Sex: Male

DRUGS (3)
  1. VALTREX [Suspect]
     Dosage: 1G PER DAY
     Route: 048
  2. NEBULIZER [Concomitant]
  3. ALLERGY SHOTS [Concomitant]

REACTIONS (1)
  - DRUG INEFFECTIVE [None]
